FAERS Safety Report 21989977 (Version 7)
Quarter: 2023Q2

REPORT INFORMATION
  Report Type: Report from Study
  Country: CA (occurrence: CA)
  Receive Date: 20230214
  Receipt Date: 20230626
  Transmission Date: 20230721
  Serious: Yes (Other)
  Sender: FDA-Public Use
  Company Number: CA-OTSUKA-2022_042352

PATIENT
  Age: 43 Year
  Sex: Female

DRUGS (4)
  1. ARIPIPRAZOLE [Suspect]
     Active Substance: ARIPIPRAZOLE
     Indication: Product used for unknown indication
     Dosage: 400 MG, Q 4 WEEKS
     Route: 030
  2. ARIPIPRAZOLE [Suspect]
     Active Substance: ARIPIPRAZOLE
     Dosage: 400 MG, EVERY 3 WEEKS
     Route: 030
  3. ARIPIPRAZOLE [Suspect]
     Active Substance: ARIPIPRAZOLE
     Dosage: 400 MG, QM
     Route: 030
  4. ARIPIPRAZOLE [Suspect]
     Active Substance: ARIPIPRAZOLE
     Dosage: 400 MG, EVERY 3 WEEKS
     Route: 030

REACTIONS (14)
  - Hallucinations, mixed [Not Recovered/Not Resolved]
  - Tooth extraction [Unknown]
  - White blood cell count increased [Not Recovered/Not Resolved]
  - Scratch [Not Recovered/Not Resolved]
  - Dermatillomania [Not Recovered/Not Resolved]
  - Skin laceration [Not Recovered/Not Resolved]
  - Tension headache [Recovering/Resolving]
  - Dry skin [Unknown]
  - Psychotic disorder [Recovering/Resolving]
  - Injection site swelling [Recovered/Resolved]
  - Insomnia [Unknown]
  - Injection site pain [Recovered/Resolved]
  - Anxiety [Recovering/Resolving]
  - Inappropriate schedule of product administration [Unknown]

NARRATIVE: CASE EVENT DATE: 20221101
